FAERS Safety Report 9915721 (Version 1)
Quarter: 2014Q1

REPORT INFORMATION
  Report Type: Spontaneous
  Country: US (occurrence: None)
  Receive Date: 20140219
  Receipt Date: 20140219
  Transmission Date: 20141002
  Serious: Yes (Other)
  Sender: FDA-Public Use
  Company Number: None

PATIENT
  Age: 71 Year
  Sex: Female
  Weight: 59.88 kg

DRUGS (11)
  1. MONTELUKAST SOD TABS 10MG MERCK + CO INC [Suspect]
     Indication: ASTHMA
     Route: 048
     Dates: start: 20140127, end: 20140201
  2. NORVASC [Concomitant]
  3. FOLGARD [Concomitant]
  4. BYSTOLIC [Concomitant]
  5. SINGULAIR [Concomitant]
  6. ALTACE [Concomitant]
  7. ZOCOR [Concomitant]
  8. ADVAIR DISKUS [Concomitant]
  9. SPIRIVA [Concomitant]
  10. CALTRATE 600 + D [Concomitant]
  11. CENTRUM SILVER [Concomitant]

REACTIONS (3)
  - Heart rate irregular [None]
  - Product substitution issue [None]
  - Therapeutic response unexpected with drug substitution [None]
